FAERS Safety Report 8346667-7 (Version None)
Quarter: 2012Q2

REPORT INFORMATION
  Report Type: 
  Country: None (occurrence: None)
  Receive Date: 20120509
  Receipt Date: 20120507
  Transmission Date: 20120825
  Serious: Yes (Death)
  Sender: FDA-Public Use
  Company Number: PHEH2012US009647

PATIENT
  Sex: Female

DRUGS (4)
  1. VITAMIN D [Concomitant]
     Dosage: UNK UKN, UNK
  2. CALCIUM [Concomitant]
     Dosage: UNK UKN, UNK
  3. RECLAST [Suspect]
     Dosage: UNK UKN, UNK
     Route: 042
     Dates: start: 20080319
  4. CRESTOR [Concomitant]
     Dosage: UNK UKN, UNK

REACTIONS (1)
  - DEATH [None]
